FAERS Safety Report 8239176-7 (Version None)
Quarter: 2012Q1

REPORT INFORMATION
  Report Type: 
  Country: None (occurrence: None)
  Receive Date: 20120328
  Receipt Date: 20120320
  Transmission Date: 20120608
  Serious: Yes (Hospitalization)
  Sender: FDA-Public Use
  Company Number: US-BIOGENIDEC-2012BI009992

PATIENT
  Age: 57 Year
  Sex: Female

DRUGS (3)
  1. AVONEX [Suspect]
     Route: 030
     Dates: start: 20091113
  2. AVONEX [Suspect]
     Indication: MULTIPLE SCLEROSIS
     Route: 030
     Dates: start: 20000403, end: 20000701
  3. AVONEX [Suspect]
     Route: 030
     Dates: start: 20000904, end: 20010903

REACTIONS (2)
  - COAGULATION TIME PROLONGED [None]
  - PULMONARY THROMBOSIS [None]
